FAERS Safety Report 13984508 (Version 2)
Quarter: 2018Q1

REPORT INFORMATION
  Report Type: Report from Study
  Country: US (occurrence: US)
  Receive Date: 20170918
  Receipt Date: 20180123
  Transmission Date: 20180508
  Serious: Yes (Hospitalization, Disabling)
  Sender: FDA-Public Use
  Company Number: PHHO2016US009734

PATIENT
  Age: 59 Year
  Sex: Male
  Weight: 66.1 kg

DRUGS (8)
  1. ONDANSETRON [Concomitant]
     Active Substance: ONDANSETRON
     Indication: NAUSEA
     Dosage: 8 MG, TID
     Route: 048
     Dates: start: 20160425
  2. PIPERACILIN/TAZOBACTAM [Concomitant]
     Active Substance: PIPERACILLIN SODIUM\TAZOBACTAM SODIUM
     Indication: ANTIBIOTIC PROPHYLAXIS
     Dosage: 4500 MG, QID
     Route: 042
     Dates: start: 20160615
  3. FLUDARABINE [Suspect]
     Active Substance: FLUDARABINE PHOSPHATE
     Indication: DIFFUSE LARGE B-CELL LYMPHOMA
     Dosage: 25 MG/M2, UNK (CUMULATIVE)
     Route: 065
     Dates: start: 20160623, end: 20160625
  4. CYTOXAN [Suspect]
     Active Substance: CYCLOPHOSPHAMIDE
     Indication: DIFFUSE LARGE B-CELL LYMPHOMA
     Dosage: 250 MG/M2, (CUMULATIVE)
     Route: 065
     Dates: start: 20160624, end: 20160625
  5. BACTRIM [Concomitant]
     Active Substance: SULFAMETHOXAZOLE\TRIMETHOPRIM
     Indication: ANTIBIOTIC PROPHYLAXIS
     Dosage: 160 MG, TIW
     Route: 048
     Dates: start: 20150316
  6. VALACICLOVIR HYDROCHLORIDE [Concomitant]
     Active Substance: VALACYCLOVIR HYDROCHLORIDE
     Indication: ANTIVIRAL PROPHYLAXIS
     Dosage: 500 MG, QD
     Route: 048
     Dates: start: 20150721
  7. KYMRIAH [Suspect]
     Active Substance: TISAGENLECLEUCEL
     Indication: DIFFUSE LARGE B-CELL LYMPHOMA
     Dosage: 13 ML (3.9X10^8/L TRANSDERMAL)
     Route: 042
     Dates: start: 20160629, end: 20160629
  8. VANCOMYCIN [Concomitant]
     Active Substance: VANCOMYCIN
     Indication: ANTIBIOTIC PROPHYLAXIS
     Dosage: 1250 MG, BID
     Route: 042
     Dates: start: 20160616

REACTIONS (6)
  - Cardiac failure congestive [Recovered/Resolved]
  - Pulmonary embolism [Unknown]
  - Bone marrow failure [Not Recovered/Not Resolved]
  - Bronchopulmonary aspergillosis [Recovered/Resolved]
  - Urosepsis [Recovered/Resolved]
  - Cytokine release syndrome [Recovered/Resolved]

NARRATIVE: CASE EVENT DATE: 20160629
